FAERS Safety Report 5754329-5 (Version None)
Quarter: 2008Q2

REPORT INFORMATION
  Report Type: 
  Country: None (occurrence: None)
  Receive Date: 20080530
  Receipt Date: 20070807
  Transmission Date: 20081010
  Serious: No
  Sender: FDA-Public Use
  Company Number: US-ABBOTT-07P-163-0377386-00

PATIENT
  Sex: Female
  Weight: 62.652 kg

DRUGS (1)
  1. GENGRAF CAPS [Suspect]
     Indication: RHEUMATOID ARTHRITIS
     Route: 048
     Dates: start: 20070502, end: 20070504

REACTIONS (2)
  - NAUSEA [None]
  - VOMITING [None]
